FAERS Safety Report 8451417-X (Version None)
Quarter: 2012Q2

REPORT INFORMATION
  Report Type: 
  Country: None (occurrence: None)
  Receive Date: 20120620
  Receipt Date: 20120228
  Transmission Date: 20120825
  Serious: No
  Sender: FDA-Public Use
  Company Number: US-VERTEX PHARMACEUTICALS INC.-AE-2012-002923

PATIENT
  Sex: Male
  Weight: 63.56 kg

DRUGS (8)
  1. NEXIUM [Concomitant]
     Route: 048
  2. INCIVEK [Suspect]
     Indication: HEPATITIS C
     Route: 048
     Dates: start: 20120208, end: 20120223
  3. ZYRTEC [Concomitant]
     Indication: HYPERSENSITIVITY
     Route: 048
  4. NEURONTIN [Concomitant]
     Route: 048
  5. FLEXERIL [Concomitant]
     Route: 048
  6. CLEOCIN HYDROCHLORIDE [Concomitant]
     Indication: OPEN WOUND
     Route: 048
     Dates: start: 20120201
  7. PEGASYS [Concomitant]
     Indication: HEPATITIS C
     Route: 058
     Dates: start: 20120208, end: 20120223
  8. RIBAVIRIN [Concomitant]
     Indication: HEPATITIS C
     Route: 048
     Dates: start: 20120208, end: 20120223

REACTIONS (6)
  - NAUSEA [None]
  - HEADACHE [None]
  - ARTHRALGIA [None]
  - VOMITING [None]
  - ASTHENIA [None]
  - DIARRHOEA [None]
